FAERS Safety Report 20924129 (Version 1)
Quarter: 2022Q2

REPORT INFORMATION
  Report Type: Spontaneous
  Country: US (occurrence: US)
  Receive Date: 20220607
  Receipt Date: 20220607
  Transmission Date: 20220721
  Serious: No
  Sender: FDA-Public Use
  Company Number: US-BRISTOL-MYERS SQUIBB COMPANY-2022-052622

PATIENT
  Age: 73 Year
  Sex: Female

DRUGS (1)
  1. REVLIMID [Suspect]
     Active Substance: LENALIDOMIDE
     Indication: Neoplasm malignant
     Dosage: FREQUENCY: 3 WEEKS AND 1 WEEK OFF
     Route: 048
     Dates: start: 20220418

REACTIONS (4)
  - Confusional state [Unknown]
  - Fall [Unknown]
  - Dysstasia [Unknown]
  - Intentional product use issue [Unknown]
